FAERS Safety Report 16230791 (Version 2)
Quarter: 2019Q2

REPORT INFORMATION
  Report Type: Spontaneous
  Country: RO (occurrence: RO)
  Receive Date: 20190423
  Receipt Date: 20190424
  Transmission Date: 20190711
  Serious: Yes (Hospitalization, Other)
  Sender: FDA-Public Use
  Company Number: RO-PFIZER INC-2019162983

PATIENT
  Age: 50 Year
  Sex: Male

DRUGS (5)
  1. ATORVASTATINE [ATORVASTATIN] [Concomitant]
     Active Substance: ATORVASTATIN
     Dosage: 10 MG, DAILY
  2. SIROLIMUS. [Suspect]
     Active Substance: SIROLIMUS
     Indication: CORONARY ARTERY STENOSIS
     Dosage: UNK
  3. SEVIKAR [Concomitant]
     Active Substance: AMLODIPINE BESYLATE\OLMESARTAN MEDOXOMIL
     Dosage: OLMESARTAN 40 MG/DAY AND AMLODIPINE 10 MG/DAY
  4. BISOPROLOL [Concomitant]
     Active Substance: BISOPROLOL
     Dosage: 5 MG, DAILY
  5. ASPIRIN [ACETYLSALICYLIC ACID] [Concomitant]
     Active Substance: ASPIRIN
     Dosage: 75 MG, DAILY

REACTIONS (13)
  - Arteriosclerosis [Unknown]
  - Drug resistance [Unknown]
  - Vascular stent stenosis [Unknown]
  - Myocardial infarction [Unknown]
  - Dyspnoea exertional [Unknown]
  - Product use in unapproved indication [Unknown]
  - Drug hypersensitivity [Unknown]
  - Device occlusion [Unknown]
  - Angina pectoris [Unknown]
  - Condition aggravated [Unknown]
  - Vascular stent occlusion [Unknown]
  - Cardiogenic shock [Unknown]
  - Pulmonary oedema [Unknown]
